FAERS Safety Report 15338128 (Version 1)
Quarter: 2018Q3

REPORT INFORMATION
  Report Type: Spontaneous
  Country: US (occurrence: US)
  Receive Date: 20180831
  Receipt Date: 20180831
  Transmission Date: 20181010
  Serious: No
  Sender: FDA-Public Use
  Company Number: US-ELI_LILLY_AND_COMPANY-US201808013436

PATIENT
  Age: 68 Year
  Sex: Male

DRUGS (7)
  1. HUMULIN N [Suspect]
     Active Substance: INSULIN HUMAN
     Indication: TYPE 1 DIABETES MELLITUS
     Dosage: 15 U, EACH MORNING
     Route: 058
  2. HUMALOG [Suspect]
     Active Substance: INSULIN LISPRO
     Indication: PRODUCT USED FOR UNKNOWN INDICATION
     Dosage: UNK UNK, UNKNOWN
     Route: 065
  3. HUMULIN R [Suspect]
     Active Substance: INSULIN HUMAN
     Dosage: 8 U, EACH EVENING
     Route: 058
  4. HUMULIN N [Suspect]
     Active Substance: INSULIN HUMAN
     Dosage: 15 U, EACH MORNING
     Route: 058
  5. HUMULIN R [Suspect]
     Active Substance: INSULIN HUMAN
     Indication: TYPE 1 DIABETES MELLITUS
     Dosage: 9?10 U, EACH MORNING
     Route: 058
  6. HUMULIN R [Suspect]
     Active Substance: INSULIN HUMAN
     Dosage: 9?10 U, EACH MORNING
     Route: 058
  7. HUMULIN R [Suspect]
     Active Substance: INSULIN HUMAN
     Dosage: 8 U, EACH EVENING
     Route: 058

REACTIONS (2)
  - Drug resistance [Unknown]
  - Wrong technique in product usage process [Unknown]

NARRATIVE: CASE EVENT DATE: 20180829
